FAERS Safety Report 6300210-2 (Version None)
Quarter: 2009Q3

REPORT INFORMATION
  Report Type: 
  Country: None (occurrence: None)
  Receive Date: 20090803
  Receipt Date: 20090720
  Transmission Date: 20100115
  Serious: Yes (Death, Hospitalization)
  Sender: FDA-Public Use
  Company Number: MPS1-1000235

PATIENT
  Age: 7 Year
  Sex: Female
  Weight: 13.5 kg

DRUGS (1)
  1. ALDURAZYME [Suspect]
     Indication: MUCOPOLYSACCHARIDOSIS IH
     Dosage: 100 U/KG, QW, INTRAVENOUS
     Route: 042
     Dates: start: 20071203, end: 20090417

REACTIONS (19)
  - ABASIA [None]
  - ARTHROPATHY [None]
  - CARDIAC FAILURE [None]
  - CARDIO-RESPIRATORY ARREST [None]
  - DEPRESSED LEVEL OF CONSCIOUSNESS [None]
  - FOOT DEFORMITY [None]
  - HYPOVENTILATION [None]
  - KYPHOSIS [None]
  - MACROGLOSSIA [None]
  - MUSCLE ATROPHY [None]
  - MUSCLE CONTRACTURE [None]
  - PNEUMOTHORAX [None]
  - RESPIRATORY FAILURE [None]
  - RESPIRATORY TRACT INFECTION VIRAL [None]
  - RHINORRHOEA [None]
  - SLUGGISHNESS [None]
  - SOMNOLENCE [None]
  - SPINAL COMPRESSION FRACTURE [None]
  - TACHYCARDIA [None]
